FAERS Safety Report 7070593-7 (Version None)
Quarter: 2010Q4

REPORT INFORMATION
  Report Type: 
  Country: None (occurrence: None)
  Receive Date: 20101029
  Receipt Date: 20101019
  Transmission Date: 20110411
  Serious: Yes (Other)
  Sender: FDA-Public Use
  Company Number: GB-PFIZER INC-2010132906

PATIENT
  Age: 60 Year
  Sex: Female
  Weight: 61 kg

DRUGS (7)
  1. SERTRALINE HYDROCHLORIDE [Suspect]
     Indication: DEPRESSED MOOD
     Dosage: UNK
     Route: 048
     Dates: start: 20090216
  2. ACETYLSALICYLIC ACID [Concomitant]
     Dosage: 75 MG, UNK
  3. INSULIN [Concomitant]
     Dosage: UNK
  4. INSULIN ISOPHANE PORCINE [Concomitant]
     Dosage: UNK
  5. LEVOTHYROXINE [Concomitant]
     Dosage: 50 UG, UNK
  6. MACROGOL [Concomitant]
     Dosage: 13.8 G, UNK
  7. OLMESARTAN MEDOXOMIL [Concomitant]
     Dosage: 20 MG, 1X/DAY

REACTIONS (14)
  - ABNORMAL DREAMS [None]
  - AGITATION [None]
  - AMNESIA [None]
  - ARTHRALGIA [None]
  - BLEPHAROSPASM [None]
  - DIZZINESS [None]
  - DRUG WITHDRAWAL SYNDROME [None]
  - DYSPEPSIA [None]
  - EAR PAIN [None]
  - EPILEPSY [None]
  - EYE DISORDER [None]
  - HEADACHE [None]
  - PARAESTHESIA [None]
  - SWOLLEN TONGUE [None]
